FAERS Safety Report 8352609-0 (Version None)
Quarter: 2012Q2

REPORT INFORMATION
  Report Type: 
  Country: None (occurrence: None)
  Receive Date: 20120509
  Receipt Date: 20120424
  Transmission Date: 20120825
  Serious: Yes (Other)
  Sender: FDA-Public Use
  Company Number: 2012SGN00163

PATIENT
  Age: 26 Year
  Sex: Female

DRUGS (1)
  1. ADCETRIS [Suspect]
     Indication: HODGKIN'S DISEASE
     Dosage: UNK, Q21D, INTRAVENOUS
     Route: 042
     Dates: start: 20111004, end: 20120228

REACTIONS (1)
  - PNEUMONITIS [None]
